FAERS Safety Report 8253984-8 (Version None)
Quarter: 2012Q2

REPORT INFORMATION
  Report Type: 
  Country: None (occurrence: None)
  Receive Date: 20120402
  Receipt Date: 20120319
  Transmission Date: 20120825
  Serious: No
  Sender: FDA-Public Use
  Company Number: US-AMGEN-USASP2012014713

PATIENT
  Age: 49 Year
  Sex: Female

DRUGS (2)
  1. ENBREL [Suspect]
     Indication: RHEUMATOID ARTHRITIS
     Dosage: 50 MG, QWK
     Dates: start: 20060101, end: 20120225
  2. HUMIRA [Concomitant]
     Dosage: UNK

REACTIONS (5)
  - CHEST PAIN [None]
  - SINUSITIS [None]
  - RHEUMATOID ARTHRITIS [None]
  - SINUS DISORDER [None]
  - PRURITUS [None]
